FAERS Safety Report 9624093 (Version 1)
Quarter: 2013Q4

REPORT INFORMATION
  Report Type: Spontaneous
  Country: US (occurrence: US)
  Receive Date: 20131015
  Receipt Date: 20131015
  Transmission Date: 20140711
  Serious: No
  Sender: FDA-Public Use
  Company Number: US-BAUSCH-BL-2013-003930

PATIENT
  Sex: Female

DRUGS (1)
  1. NEOMYCIN AND POLYMYXIN B SULFATES AND HYDROCORTISONE OTIC SUSPENSION U [Suspect]
     Indication: PROPHYLAXIS
     Dosage: 3 DROPS IN AFFECTED EAR; THREE TO FOUR TIMES DAILY; AURICULAR
     Route: 001
     Dates: start: 20130621

REACTIONS (3)
  - Off label use [Unknown]
  - Blister [Unknown]
  - Pruritus [Unknown]
